FAERS Safety Report 5182646-9 (Version None)
Quarter: 2006Q4

REPORT INFORMATION
  Report Type: 
  Country: None (occurrence: None)
  Receive Date: 20061220
  Receipt Date: 20061010
  Transmission Date: 20070319
  Serious: Yes (Other)
  Sender: FDA-Public Use
  Company Number: PHEH2006US12709

PATIENT
  Age: 61 Year
  Sex: Female

DRUGS (3)
  1. MIACALCIN [Suspect]
     Indication: OSTEOPOROSIS
     Dosage: 200 IU, QD
     Dates: start: 20060101, end: 20060301
  2. MIACALCIN [Suspect]
     Dosage: 200 IU, QD
  3. TOPAMAX [Concomitant]
     Indication: MIGRAINE
     Dates: start: 20000101

REACTIONS (1)
  - TRIGEMINAL NEURALGIA [None]
